FAERS Safety Report 23324992 (Version 1)
Quarter: 2023Q4

REPORT INFORMATION
  Report Type: Report from Study
  Country: JO (occurrence: JO)
  Receive Date: 20231221
  Receipt Date: 20231221
  Transmission Date: 20240110
  Serious: Yes (Hospitalization, Other)
  Sender: FDA-Public Use
  Company Number: JO-BoehringerIngelheim-2023-BI-278480

PATIENT
  Age: 74 Year
  Sex: Female

DRUGS (1)
  1. OFEV [Suspect]
     Active Substance: NINTEDANIB
     Indication: Cystic fibrosis
     Route: 048

REACTIONS (4)
  - Pulmonary embolism [Unknown]
  - Tachycardia [Not Recovered/Not Resolved]
  - Cerebrovascular accident [Unknown]
  - Intentional product use issue [Unknown]
